FAERS Safety Report 9012290 (Version 7)
Quarter: 2013Q2

REPORT INFORMATION
  Report Type: Spontaneous
  Country: US (occurrence: US)
  Receive Date: 20130114
  Receipt Date: 20130620
  Transmission Date: 20140414
  Serious: Yes (Hospitalization, Disabling, Other)
  Sender: FDA-Public Use
  Company Number: US-009507513-1206USA05071

PATIENT
  Sex: Female
  Weight: 47.62 kg

DRUGS (2)
  1. FOSAMAX [Suspect]
     Indication: OSTEOPOROSIS
     Dosage: 10 MG, UNK
     Route: 048
     Dates: start: 20000427, end: 20020211
  2. FOSAMAX PLUS D [Suspect]
     Indication: OSTEOPOROSIS
     Dosage: 70 UNK, UNK
     Route: 048
     Dates: start: 20050105, end: 20081226

REACTIONS (70)
  - Femur fracture [Unknown]
  - Open reduction of fracture [Unknown]
  - Intramedullary rod insertion [Recovered/Resolved]
  - Tonsillectomy [Unknown]
  - Impaired healing [Recovered/Resolved]
  - Pain [Not Recovered/Not Resolved]
  - Disability [Unknown]
  - Anaemia postoperative [Unknown]
  - Atypical femur fracture [Unknown]
  - Fall [Unknown]
  - Depression [Unknown]
  - Anxiety [Unknown]
  - Sleep disorder [Unknown]
  - Joint injury [Unknown]
  - Limb injury [Unknown]
  - Diabetes mellitus [Not Recovered/Not Resolved]
  - Hypothyroidism [Not Recovered/Not Resolved]
  - Hypertension [Not Recovered/Not Resolved]
  - Hypercholesterolaemia [Not Recovered/Not Resolved]
  - Ovarian cyst [Unknown]
  - Autoimmune thyroiditis [Unknown]
  - Iron deficiency [Unknown]
  - Sciatica [Unknown]
  - Hysterectomy [Unknown]
  - Fall [Recovered/Resolved]
  - Arthropathy [Unknown]
  - Bronchitis [Unknown]
  - Haemorrhoids [Unknown]
  - Breast pain [Unknown]
  - Cough [Unknown]
  - Candida infection [Unknown]
  - Haematuria [Unknown]
  - Eczema [Unknown]
  - Ligament sprain [Unknown]
  - Intestinal obstruction [Unknown]
  - Viral infection [Unknown]
  - Palpitations [Unknown]
  - Synovial cyst [Unknown]
  - Urethral disorder [Unknown]
  - Skin hypertrophy [Unknown]
  - Cardiac murmur [Unknown]
  - Vaginal infection [Unknown]
  - Enteritis [Unknown]
  - Pharyngitis [Unknown]
  - Paronychia [Unknown]
  - Upper respiratory tract infection [Unknown]
  - Acute sinusitis [Unknown]
  - Monarthritis [Unknown]
  - Patellofemoral pain syndrome [Unknown]
  - Osteoarthritis [Unknown]
  - Breast mass [Unknown]
  - Dysuria [Unknown]
  - Limb asymmetry [Unknown]
  - Crepitations [Unknown]
  - Muscle atrophy [Unknown]
  - Myositis [Unknown]
  - Myalgia [Unknown]
  - Abdominal pain upper [Unknown]
  - Osteoarthritis [Unknown]
  - Spinal osteoarthritis [Unknown]
  - Groin pain [Unknown]
  - Dyspepsia [Unknown]
  - Back pain [Unknown]
  - Pain in extremity [Unknown]
  - Back pain [Unknown]
  - Gastrooesophageal reflux disease [Not Recovered/Not Resolved]
  - Pain in extremity [Unknown]
  - Back pain [Unknown]
  - Asthenia [Unknown]
  - Muscle spasms [Unknown]
